FAERS Safety Report 4372827-6 (Version None)
Quarter: 2004Q2

REPORT INFORMATION
  Report Type: 
  Country: None (occurrence: None)
  Receive Date: 20040526
  Receipt Date: 20040512
  Transmission Date: 20050107
  Serious: Yes (Death)
  Sender: FDA-Public Use
  Company Number: 2004AP00882

PATIENT
  Age: 65 Year
  Sex: Male

DRUGS (13)
  1. IRESSA [Suspect]
     Indication: LUNG ADENOCARCINOMA
     Dosage: 250 MG DAILY PO
     Route: 048
     Dates: start: 20030909, end: 20030910
  2. IRESSA [Suspect]
     Indication: NON-SMALL CELL LUNG CANCER
     Dosage: 250 MG DAILY PO
     Route: 048
     Dates: start: 20030909, end: 20030910
  3. CLYCEOL [Concomitant]
  4. CISPLATIN [Concomitant]
  5. VINDESINE [Concomitant]
  6. CARBOPLATIN [Concomitant]
  7. PACLITAXEL [Concomitant]
  8. RADIATION THERAPY [Concomitant]
  9. MULTIVITAMIN ADDITIVE [Concomitant]
  10. GASTER [Concomitant]
  11. PRIMPERAN INJ [Concomitant]
  12. AMINOFLUID [Concomitant]
  13. DECADRON [Suspect]
     Indication: BRAIN OEDEMA
     Dosage: 8 MG DAILY
     Dates: start: 20030818

REACTIONS (17)
  - ALANINE AMINOTRANSFERASE INCREASED [None]
  - ASPARTATE AMINOTRANSFERASE INCREASED [None]
  - BRONCHOPNEUMONIA [None]
  - C-REACTIVE PROTEIN INCREASED [None]
  - CHEST X-RAY ABNORMAL [None]
  - DRUG INEFFECTIVE [None]
  - GAMMA-GLUTAMYLTRANSFERASE INCREASED [None]
  - HEART RATE DECREASED [None]
  - LIVER DISORDER [None]
  - LUNG INFILTRATION [None]
  - MARKEDLY REDUCED DIETARY INTAKE [None]
  - NAUSEA [None]
  - PNEUMONIA BACTERIAL [None]
  - PULMONARY MASS [None]
  - RESPIRATORY DISORDER [None]
  - RESTLESSNESS [None]
  - SOMNOLENCE [None]
